FAERS Safety Report 9629664 (Version 3)
Quarter: 2013Q4

REPORT INFORMATION
  Report Type: Spontaneous
  Country: JP (occurrence: JP)
  Receive Date: 20131017
  Receipt Date: 20131127
  Transmission Date: 20140711
  Serious: Yes (Hospitalization)
  Sender: FDA-Public Use
  Company Number: JP-ASTRAZENECA-2013SE75308

PATIENT
  Age: 15905 Day
  Sex: Female
  Weight: 81 kg

DRUGS (15)
  1. SYMBICORT TURBUHALER [Suspect]
     Indication: ASTHMA
     Dosage: 2 PUFFS TWICE DAILY
     Route: 055
  2. SYMBICORT TURBUHALER [Suspect]
     Indication: ASTHMA
     Dosage: 8 PUFFS TWICE DAILY
     Route: 055
     Dates: start: 20131009, end: 20131009
  3. SYMBICORT TURBUHALER [Suspect]
     Indication: ASTHMA
     Dosage: 4 PUFFS TWICE DAILY
     Route: 055
  4. UNICON [Suspect]
     Indication: ASTHMA
     Route: 048
     Dates: end: 20131009
  5. KIPRES [Concomitant]
     Indication: ASTHMA
     Route: 048
     Dates: start: 200712
  6. CLARITHROMYCIN [Concomitant]
     Indication: LOWER RESPIRATORY TRACT INFECTION
     Route: 048
  7. PARIET [Concomitant]
     Indication: GASTROOESOPHAGEAL REFLUX DISEASE
     Route: 048
  8. CLEANAL [Concomitant]
     Indication: ASTHMA
     Route: 048
  9. MICAMLO [Concomitant]
     Indication: HYPERTENSION
     Route: 048
  10. OLOPATADINE HYDROCHLORIDE [Concomitant]
     Indication: RHINITIS ALLERGIC
     Route: 048
  11. MIYA BM [Concomitant]
     Indication: DIARRHOEA
     Route: 048
  12. AKINETON [Concomitant]
     Indication: SCHIZOPHRENIA
     Route: 048
  13. LONASEN [Concomitant]
     Indication: SCHIZOPHRENIA
     Route: 048
  14. DEPAKENE-R [Concomitant]
     Indication: SCHIZOPHRENIA
     Route: 048
  15. AMOBAN [Concomitant]
     Indication: SCHIZOPHRENIA
     Route: 048

REACTIONS (4)
  - Overdose [Unknown]
  - Asthma [Recovered/Resolved]
  - Tremor [Not Recovered/Not Resolved]
  - Tachycardia [Recovered/Resolved]
